FAERS Safety Report 7424335-3 (Version None)
Quarter: 2011Q2

REPORT INFORMATION
  Report Type: 
  Country: None (occurrence: None)
  Receive Date: 20110405
  Receipt Date: 20110324
  Transmission Date: 20111010
  Serious: Yes (Hospitalization, Other)
  Sender: FDA-Public Use
  Company Number: 2011PROUSA00263

PATIENT
  Age: 83 Year
  Sex: Male
  Weight: 105.8 kg

DRUGS (8)
  1. ASMANEX TWISTHALER [Concomitant]
  2. MISOPROSTOL [Concomitant]
  3. PROVENGE [Suspect]
     Indication: PROSTATE CANCER METASTATIC
     Dosage: 250 ML, SINGLE, INTRAVENOUS
     Route: 042
     Dates: start: 20110314, end: 20110314
  4. PROVENGE [Suspect]
     Indication: PROSTATE CANCER METASTATIC
     Dosage: 250 ML, SINGLE, INTRAVENOUS
     Route: 042
     Dates: start: 20110228, end: 20110228
  5. MULTIVITAMINS (ASCORBIC ACID, ERGOCALCIFEROL, FOLIC ACID, NICOTINAMIDE [Concomitant]
  6. PROVENGE [Suspect]
  7. LOPRESSOR [Concomitant]
  8. DICLOFENAC (DICLOFENAC) [Concomitant]

REACTIONS (9)
  - HAEMATURIA [None]
  - HAEMORRHOIDS [None]
  - NORMOCHROMIC NORMOCYTIC ANAEMIA [None]
  - LOWER GASTROINTESTINAL HAEMORRHAGE [None]
  - HYDRONEPHROSIS [None]
  - POLYP COLORECTAL [None]
  - LEUKOCYTOSIS [None]
  - RENAL FAILURE ACUTE [None]
  - BLADDER OBSTRUCTION [None]
